FAERS Safety Report 4462029-7 (Version None)
Quarter: 2004Q3

REPORT INFORMATION
  Report Type: 
  Country: None (occurrence: None)
  Receive Date: 20040924
  Receipt Date: 20040924
  Transmission Date: 20050211
  Serious: No
  Sender: FDA-Public Use
  Company Number: None

PATIENT
  Age: 58 Year
  Sex: Male

DRUGS (4)
  1. AMBISOME [Suspect]
     Indication: EYE INFECTION FUNGAL
     Dosage: 385 MG IV QD
     Route: 042
     Dates: start: 20040701, end: 20040915
  2. LIPITOR [Concomitant]
  3. PRILOSEC [Concomitant]
  4. OXYCODONE HCL [Concomitant]

REACTIONS (4)
  - BLOOD CHOLESTEROL INCREASED [None]
  - BLOOD TRIGLYCERIDES INCREASED [None]
  - CEREBROVASCULAR ACCIDENT [None]
  - LOW DENSITY LIPOPROTEIN INCREASED [None]
